FAERS Safety Report 18551625 (Version 1)
Quarter: 2020Q4

REPORT INFORMATION
  Report Type: Spontaneous
  Country: US (occurrence: US)
  Receive Date: 20201126
  Receipt Date: 20201126
  Transmission Date: 20210114
  Serious: Yes (Hospitalization, Other)
  Sender: FDA-Public Use
  Company Number: US-PURDUE-USA-2020-0178606

PATIENT
  Sex: Female

DRUGS (6)
  1. OXYCODONE/ ACETAMINOPHEN TABLETS [Suspect]
     Active Substance: ACETAMINOPHEN\OXYCODONE HYDROCHLORIDE
     Indication: PRODUCT USED FOR UNKNOWN INDICATION
     Dosage: UNKNOWN DOSE
     Route: 048
  2. IMODIUM [Concomitant]
     Active Substance: LOPERAMIDE HYDROCHLORIDE
     Indication: INCONTINENCE
     Dosage: UNKNOWN DOSE
     Route: 065
  3. OXYCONTIN [Suspect]
     Active Substance: OXYCODONE HYDROCHLORIDE
     Indication: SPINAL FUSION SURGERY
     Dosage: UNKNOWN DOSE
     Route: 048
     Dates: start: 2014
  4. CANNABIS [Suspect]
     Active Substance: CANNABIS SATIVA SUBSP. INDICA TOP
     Indication: BACK PAIN
  5. MS CONTIN [Suspect]
     Active Substance: MORPHINE SULFATE
     Indication: PRODUCT USED FOR UNKNOWN INDICATION
     Dosage: UNKNOWN DOSE
     Route: 048
  6. CANNABIS [Suspect]
     Active Substance: CANNABIS SATIVA SUBSP. INDICA TOP
     Indication: IRRITABLE BOWEL SYNDROME
     Dosage: UNKNOWN DOSE
     Route: 065

REACTIONS (13)
  - Hypertension [Unknown]
  - Irritable bowel syndrome [Unknown]
  - Cognitive disorder [Unknown]
  - Pain [Unknown]
  - Fatigue [Unknown]
  - Arrhythmia [Unknown]
  - Emotional distress [Unknown]
  - Drug dependence [Unknown]
  - Withdrawal syndrome [Unknown]
  - Unevaluable event [Unknown]
  - Encephalopathy [Unknown]
  - Diarrhoea [Unknown]
  - Incontinence [Unknown]

NARRATIVE: CASE EVENT DATE: 2017
